FAERS Safety Report 16749952 (Version 1)
Quarter: 2019Q3

REPORT INFORMATION
  Report Type: Spontaneous
  Country: IE (occurrence: IE)
  Receive Date: 20190828
  Receipt Date: 20190828
  Transmission Date: 20191005
  Serious: Yes (Life-Threatening, Hospitalization, Other)
  Sender: FDA-Public Use
  Company Number: IE-ELI_LILLY_AND_COMPANY-IE201908011165

PATIENT
  Age: 60 Year
  Sex: Male

DRUGS (2)
  1. CISPLATIN. [Suspect]
     Active Substance: CISPLATIN
     Indication: TRANSITIONAL CELL CANCER OF THE RENAL PELVIS AND URETER
     Dosage: 75 MG/M2, CYCLICAL
     Route: 065
  2. GEMCITABINE HYDROCHLORIDE. [Suspect]
     Active Substance: GEMCITABINE HYDROCHLORIDE
     Indication: TRANSITIONAL CELL CANCER OF THE RENAL PELVIS AND URETER
     Dosage: 1000 MG/M2, CYCLICAL
     Route: 065

REACTIONS (6)
  - Embolic stroke [Recovered/Resolved]
  - Thrombocytopenia [Recovered/Resolved]
  - Ventricular hypokinesia [Recovered/Resolved]
  - Hypomagnesaemia [Recovered/Resolved]
  - Ischaemic stroke [Recovered/Resolved]
  - Cardiac ventricular thrombosis [Recovered/Resolved]
